FAERS Safety Report 7391920 (Version 4)
Quarter: 2012Q4

REPORT INFORMATION
  Report Type: 
  Country: US (occurrence: US)
  Receive Date: 20100518
  Receipt Date: 20121105
  Transmission Date: 20130627
  Serious: Yes (Hospitalization, Other)
  Sender: FDA-Public Use
  Company Number: PHEH2010US03442

PATIENT
  Age: 24 Year
  Sex: Female

DRUGS (1)
  1. TEGRETOL [Suspect]
     Indication: BIPOLAR DISORDER
     Dates: start: 20080611, end: 20080718

REACTIONS (59)
  - Toxic epidermal necrolysis [Unknown]
  - Stevens-Johnson syndrome [Unknown]
  - Injury [Unknown]
  - Deformity [Unknown]
  - Pain [Unknown]
  - Disability [Unknown]
  - Mental disorder [Unknown]
  - Anxiety [Unknown]
  - Anhedonia [Unknown]
  - Decreased interest [Unknown]
  - Rash [Unknown]
  - Pruritus [Unknown]
  - Skin discolouration [Unknown]
  - Skin exfoliation [Unknown]
  - Alopecia [Unknown]
  - Nail disorder [Unknown]
  - Pigmentation disorder [Unknown]
  - Urticaria [Unknown]
  - Swelling [Unknown]
  - Skin lesion [Unknown]
  - Skin burning sensation [Unknown]
  - Mucous membrane disorder [Unknown]
  - Scar [Unknown]
  - Blindness [Unknown]
  - Internal injury [Unknown]
  - Hypersensitivity [Unknown]
  - Ear pain [Unknown]
  - Cubital tunnel syndrome [Unknown]
  - Cervical dysplasia [Unknown]
  - Breast enlargement [Unknown]
  - Hepatitis B [Unknown]
  - Oedema peripheral [Unknown]
  - Nasal congestion [Unknown]
  - Hypertension [Unknown]
  - Rhinorrhoea [Unknown]
  - Migraine [Unknown]
  - Abdominal pain upper [Unknown]
  - Erythema [Unknown]
  - Oropharyngeal pain [Unknown]
  - Vaginal infection [Unknown]
  - Vaginal discharge [Unknown]
  - Hyperlipidaemia [Unknown]
  - Haemorrhoids [Unknown]
  - Dysphagia [Unknown]
  - Tenderness [Unknown]
  - Otorrhoea [Unknown]
  - Pharyngeal erythema [Unknown]
  - Hyperaesthesia [Unknown]
  - Asthenia [Unknown]
  - Arthralgia [Unknown]
  - Constipation [Unknown]
  - Hypertriglyceridaemia [Unknown]
  - Eye pruritus [Unknown]
  - Social phobia [Unknown]
  - Dry eye [Unknown]
  - Back pain [Unknown]
  - Headache [Unknown]
  - Fatigue [Unknown]
  - Toothache [Unknown]
